FAERS Safety Report 7514768-9 (Version None)
Quarter: 2011Q2

REPORT INFORMATION
  Report Type: 
  Country: None (occurrence: None)
  Receive Date: 20110526
  Receipt Date: 20110526
  Transmission Date: 20111010
  Serious: Yes (Hospitalization)
  Sender: FDA-Public Use
  Company Number: None

PATIENT
  Age: 78 Year
  Sex: Female
  Weight: 67.1324 kg

DRUGS (1)
  1. NORDITROPIN FLEXPRO [Suspect]
     Dosage: 0.5 MG QD SC
     Route: 058

REACTIONS (1)
  - GASTRITIS [None]
